FAERS Safety Report 12781263 (Version 1)
Quarter: 2016Q3

REPORT INFORMATION
  Report Type: Report from Study
  Country: BR (occurrence: BR)
  Receive Date: 20160926
  Receipt Date: 20160926
  Transmission Date: 20161109
  Serious: Yes (Other)
  Sender: FDA-Public Use
  Company Number: BR-ABBVIE-16K-020-1735916-00

PATIENT
  Age: 65 Year
  Sex: Female
  Weight: 81 kg

DRUGS (4)
  1. ARAVA [Concomitant]
     Active Substance: LEFLUNOMIDE
     Indication: RHEUMATOID ARTHRITIS
     Route: 048
  2. NATRILIX [Concomitant]
     Active Substance: INDAPAMIDE
     Indication: HYPERTENSION
     Route: 048
  3. BENICAR [Concomitant]
     Active Substance: OLMESARTAN MEDOXOMIL
     Indication: HYPERTENSION
     Route: 048
  4. HUMIRA [Suspect]
     Active Substance: ADALIMUMAB
     Indication: RHEUMATOID ARTHRITIS
     Route: 058
     Dates: end: 20160902

REACTIONS (14)
  - Oral herpes [Recovering/Resolving]
  - Nasopharyngitis [Recovering/Resolving]
  - Dysphonia [Recovered/Resolved]
  - Glucose tolerance impaired [Unknown]
  - Urinary incontinence [Recovered/Resolved]
  - Catarrh [Recovered/Resolved]
  - Ear discomfort [Recovering/Resolving]
  - Sinusitis [Recovered/Resolved]
  - Catarrh [Recovered/Resolved]
  - Nasopharyngeal reflux [Unknown]
  - Sinusitis [Recovering/Resolving]
  - Sleep apnoea syndrome [Unknown]
  - Influenza [Recovered/Resolved]
  - Tinnitus [Recovering/Resolving]

NARRATIVE: CASE EVENT DATE: 201502
